FAERS Safety Report 16868778 (Version 1)
Quarter: 2019Q3

REPORT INFORMATION
  Report Type: Spontaneous
  Country: CH (occurrence: CH)
  Receive Date: 20190930
  Receipt Date: 20190930
  Transmission Date: 20191005
  Serious: Yes (Other)
  Sender: FDA-Public Use
  Company Number: CH-PFIZER INC-2019414285

PATIENT
  Age: 22 Year
  Sex: Female

DRUGS (8)
  1. CLEXANE [Concomitant]
     Active Substance: ENOXAPARIN SODIUM
     Dosage: UNK
     Dates: end: 20190314
  2. PEGASYS [Suspect]
     Active Substance: PEGINTERFERON ALFA-2A
     Dosage: UNK (GRADUAL INCREASE IN DOSE EVERY 3 WEEKS)
     Dates: start: 20190429, end: 201907
  3. INDERAL [Suspect]
     Active Substance: PROPRANOLOL HYDROCHLORIDE
     Dosage: 40 MG, 3X/DAY
     Dates: start: 201903
  4. ARIXTRA [Suspect]
     Active Substance: FONDAPARINUX SODIUM
     Dosage: 7.5 MG, DAILY
     Route: 058
     Dates: start: 20190808
  5. FRAXIFORTE [Concomitant]
     Active Substance: NADROPARIN CALCIUM
     Dosage: UNK
     Dates: start: 20190314, end: 20190807
  6. ALDACTONE [Suspect]
     Active Substance: SPIRONOLACTONE
     Dosage: 50 MG, DAILY
     Route: 048
     Dates: start: 201903
  7. PEGASYS [Suspect]
     Active Substance: PEGINTERFERON ALFA-2A
     Dosage: 135 UG, WEEKLY
     Dates: start: 201907
  8. LITALIR [Concomitant]
     Active Substance: HYDROXYUREA
     Dosage: UNK
     Dates: start: 201903, end: 20190429

REACTIONS (3)
  - Alopecia [Not Recovered/Not Resolved]
  - Mixed liver injury [Recovering/Resolving]
  - Cholestasis [Recovering/Resolving]

NARRATIVE: CASE EVENT DATE: 20190805
